FAERS Safety Report 9100665 (Version 2)
Quarter: 2013Q2

REPORT INFORMATION
  Report Type: Report from Study
  Country: CA (occurrence: CA)
  Receive Date: 20130215
  Receipt Date: 20130610
  Transmission Date: 20140414
  Serious: Yes (Hospitalization)
  Sender: FDA-Public Use
  Company Number: CA-JNJFOC-20130205350

PATIENT
  Age: 37 Year
  Sex: Male
  Weight: 207 kg

DRUGS (4)
  1. REMICADE [Suspect]
     Indication: FISTULA
     Route: 042
     Dates: start: 2012
  2. REMICADE [Suspect]
     Indication: FISTULA
     Route: 042
     Dates: start: 201209
  3. REMICADE [Suspect]
     Indication: CROHN^S DISEASE
     Route: 042
     Dates: start: 2012
  4. REMICADE [Suspect]
     Indication: CROHN^S DISEASE
     Route: 042
     Dates: start: 201209

REACTIONS (2)
  - Abscess [Recovered/Resolved]
  - Weight decreased [Unknown]
